FAERS Safety Report 8826043 (Version 1)
Quarter: 2012Q4

REPORT INFORMATION
  Report Type: 
  Country: PE (occurrence: PE)
  Receive Date: 20121005
  Receipt Date: 20121005
  Transmission Date: 20130627
  Serious: Yes (Death)
  Sender: FDA-Public Use
  Company Number: PE-PFIZER INC-2012245277

PATIENT
  Age: 44 Year
  Sex: Female

DRUGS (1)
  1. ZOLOFT [Suspect]
     Route: 048

REACTIONS (1)
  - Death [Fatal]
